FAERS Safety Report 7651220-4 (Version None)
Quarter: 2011Q3

REPORT INFORMATION
  Report Type: 
  Country: None (occurrence: None)
  Receive Date: 20110802
  Receipt Date: 20110726
  Transmission Date: 20111222
  Serious: Yes (Life-Threatening, Other)
  Sender: FDA-Public Use
  Company Number: PHHY2011US60510

PATIENT
  Sex: Female
  Weight: 194 kg

DRUGS (27)
  1. XANAX [Concomitant]
  2. HYDRALAZINE HCL [Concomitant]
  3. METOPROLOL TARTRATE [Concomitant]
  4. MICARDIS [Concomitant]
  5. NOVOLOG [Concomitant]
  6. DICLOFENAC SODIUM [Concomitant]
  7. TEKTURNA [Suspect]
     Dosage: 300 MG, QD
     Dates: start: 20070101
  8. AMLODIPINE BESYLATE [Suspect]
  9. PRAVASTATIN [Concomitant]
  10. POTASSIUM [Concomitant]
     Dosage: 2 DF, Q72H
  11. RANITIDINE [Concomitant]
     Dosage: 300 MG, UNK
  12. LASIX [Concomitant]
  13. OXYCODONE HCL AND ACETAMINOPHEN [Concomitant]
  14. PROTONIX [Concomitant]
  15. ZANTAC [Concomitant]
  16. LISINOPRIL [Suspect]
  17. SODIUM CHLORIDE [Concomitant]
     Dosage: 20 MG, QD (ONCE AT THE BEDTIME)
  18. SINGULAIR [Concomitant]
  19. INSULIN [Concomitant]
  20. CLONIDINE HYDROCHLORIDE [Concomitant]
     Dosage: 0.2 MG, TID
  21. PANTOPRAZOLE SOD DR [Concomitant]
     Dosage: 40 MG, ONE AT BEDTIME
  22. LANTUS [Concomitant]
  23. CELEXA [Concomitant]
  24. FLUROSEMIDE [Concomitant]
     Dosage: 2 DF, EVRY 3 DAYS AS NEEDED
  25. ALPRAZOLAM [Concomitant]
     Dosage: 2 MG, ONE TO THREE TIMES DAILY AS NEEDED
  26. FLEXEN [Concomitant]
  27. ASPIRIN [Concomitant]
     Dosage: 81 MG, BID

REACTIONS (7)
  - CARDIAC DISORDER [None]
  - DRUG INEFFECTIVE [None]
  - HEART RATE INCREASED [None]
  - OEDEMA PERIPHERAL [None]
  - SUPRAVENTRICULAR TACHYCARDIA [None]
  - CHEST PAIN [None]
  - BLOOD PRESSURE INCREASED [None]
